FAERS Safety Report 7412875-2 (Version None)
Quarter: 2011Q2

REPORT INFORMATION
  Report Type: 
  Country: None (occurrence: None)
  Receive Date: 20110404
  Receipt Date: 20110322
  Transmission Date: 20111010
  Serious: Yes (Hospitalization)
  Sender: FDA-Public Use
  Company Number: 029750

PATIENT
  Age: 38 Year
  Sex: Female

DRUGS (5)
  1. SIPRALEXA [Concomitant]
  2. LACOSAMIDE [Suspect]
     Indication: EPILEPSY
     Dosage: DOSE PER INTAKE:200.TOTAL DAILY DOSE:400 ORAL, 200 MG, BID, (DOSE REDUCED)
     Route: 048
     Dates: start: 20110201
  3. LACOSAMIDE [Suspect]
     Indication: EPILEPSY
     Dosage: DOSE PER INTAKE:200.TOTAL DAILY DOSE:400 ORAL, 200 MG, BID, (DOSE REDUCED)
     Route: 048
     Dates: start: 20101025
  4. LACOSAMIDE [Suspect]
     Indication: EPILEPSY
     Dosage: DOSE PER INTAKE:200.TOTAL DAILY DOSE:400 ORAL, 200 MG, BID, (DOSE REDUCED)
     Route: 048
     Dates: start: 20110301
  5. TEGRETOL [Concomitant]

REACTIONS (1)
  - GRAND MAL CONVULSION [None]
